FAERS Safety Report 11714800 (Version 3)
Quarter: 2015Q4

REPORT INFORMATION
  Report Type: Spontaneous
  Country: BR (occurrence: BR)
  Receive Date: 20151109
  Receipt Date: 20151217
  Transmission Date: 20160304
  Serious: Yes (Other)
  Sender: FDA-Public Use
  Company Number: PHHY2015BR145555

PATIENT
  Sex: Male

DRUGS (4)
  1. EXELON PATCH [Suspect]
     Active Substance: RIVASTIGMINE
     Dosage: 9.5 MG (PATCH 18 MG/ 10CM2 30 SYST), QD
     Route: 062
  2. EXELON PATCH [Suspect]
     Active Substance: RIVASTIGMINE
     Dosage: 13.3 MG (PATCH 27 MG/ 15CM2 30 SYST), QD
     Route: 062
     Dates: start: 20151102
  3. INSULIN [Concomitant]
     Active Substance: INSULIN NOS
     Indication: PRODUCT USED FOR UNKNOWN INDICATION
     Route: 065
  4. EXELON PATCH [Suspect]
     Active Substance: RIVASTIGMINE
     Indication: PRODUCT USED FOR UNKNOWN INDICATION
     Dosage: 4.6 MG (PATCH 9 MG/ 5CM2 30 SYST), QD
     Route: 062

REACTIONS (9)
  - Seborrhoea [Unknown]
  - Wrong technique in product usage process [Unknown]
  - Application site reaction [Unknown]
  - Dementia Alzheimer^s type [Unknown]
  - Product adhesion issue [Unknown]
  - Dermatitis allergic [Unknown]
  - Pruritus [Unknown]
  - Hypertension [Unknown]
  - Diabetes mellitus [Unknown]
